FAERS Safety Report 7583828-9 (Version None)
Quarter: 2011Q2

REPORT INFORMATION
  Report Type: 
  Country: None (occurrence: None)
  Receive Date: 20110630
  Receipt Date: 20110622
  Transmission Date: 20111010
  Serious: Yes (Other)
  Sender: FDA-Public Use
  Company Number: JP-ROCHE-785943

PATIENT
  Age: 56 Year
  Sex: Female

DRUGS (3)
  1. METHOTREXATE [Concomitant]
     Dosage: DOSAGE IS UNCERTAIN.
     Route: 065
  2. CELLCEPT [Suspect]
     Indication: GRAFT VERSUS HOST DISEASE
     Dosage: DOSAGE IS UNCERTAIN.
     Route: 048
  3. TACROLIMUS [Concomitant]
     Route: 065

REACTIONS (6)
  - MELAENA [None]
  - CEREBRAL HAEMORRHAGE [None]
  - THROMBOTIC MICROANGIOPATHY [None]
  - CONDITION AGGRAVATED [None]
  - PLATELET COUNT INCREASED [None]
  - DIFFUSE LARGE B-CELL LYMPHOMA RECURRENT [None]
